FAERS Safety Report 13065909 (Version 1)
Quarter: 2016Q4

REPORT INFORMATION
  Report Type: Spontaneous
  Country: TR (occurrence: TR)
  Receive Date: 20161227
  Receipt Date: 20161227
  Transmission Date: 20170207
  Serious: Yes (Other)
  Sender: FDA-Public Use
  Company Number: TR-GLAXOSMITHKLINE-TR2016GSK190455

PATIENT
  Age: 38 Year
  Sex: Male
  Weight: 83 kg

DRUGS (3)
  1. IPRAVENTOL [Concomitant]
     Indication: PRODUCT USED FOR UNKNOWN INDICATION
     Dosage: UNK
  2. STERINEB SALAMOL [Concomitant]
     Indication: ASTHMA
     Dosage: UNK0.5 MG/2.5 MG
  3. FLIXOTIDE [Suspect]
     Active Substance: FLUTICASONE PROPIONATE
     Indication: ASTHMA
     Dosage: UNK

REACTIONS (3)
  - Local swelling [Recovering/Resolving]
  - Tachycardia [Recovering/Resolving]
  - Extra dose administered [Recovered/Resolved]

NARRATIVE: CASE EVENT DATE: 20160101
